FAERS Safety Report 6477499-2 (Version None)
Quarter: 2009Q4

REPORT INFORMATION
  Report Type: 
  Country: None (occurrence: None)
  Receive Date: 20091207
  Receipt Date: 20091104
  Transmission Date: 20100525
  Serious: Yes (Death)
  Sender: FDA-Public Use
  Company Number: DE-SANOFI-AVENTIS-F04200900124

PATIENT
  Age: 61 Year
  Sex: Male
  Weight: 79 kg

DRUGS (13)
  1. OXALIPLATIN [Suspect]
     Route: 041
  2. OXALIPLATIN [Suspect]
     Route: 041
     Dates: start: 20090512
  3. BEVACIZUMAB [Suspect]
     Route: 041
  4. BEVACIZUMAB [Suspect]
     Route: 041
     Dates: start: 20090512
  5. FLUOROURACIL [Suspect]
     Route: 040
     Dates: start: 20090512
  6. FLUOROURACIL [Suspect]
     Route: 041
     Dates: start: 20090512
  7. FLUOROURACIL [Suspect]
     Route: 040
  8. FLUOROURACIL [Suspect]
     Route: 041
  9. LEUCOVORIN CALCIUM [Suspect]
     Route: 041
  10. LEUCOVORIN CALCIUM [Suspect]
     Route: 041
     Dates: start: 20090512
  11. BROMAZEPAM [Concomitant]
     Indication: DRUG USE FOR UNKNOWN INDICATION
     Route: 065
  12. GRANISETRON HCL [Concomitant]
     Indication: DRUG USE FOR UNKNOWN INDICATION
     Route: 065
     Dates: start: 20090512, end: 20090101
  13. DEXAMETHASONE TAB [Concomitant]
     Indication: DRUG USE FOR UNKNOWN INDICATION
     Route: 065
     Dates: start: 20090512, end: 20090101

REACTIONS (1)
  - DEATH [None]
